FAERS Safety Report 10224106 (Version 1)
Quarter: 2014Q2

REPORT INFORMATION
  Report Type: Report from Study
  Country: NL (occurrence: NL)
  Receive Date: 20140609
  Receipt Date: 20140609
  Transmission Date: 20141212
  Serious: Yes (Hospitalization, Other)
  Sender: FDA-Public Use
  Company Number: PHHY2014NL068711

PATIENT
  Age: 85 Year
  Sex: Male

DRUGS (5)
  1. CALCIUM CARBONATE [Suspect]
  2. PNEUMOCOCCAL 13 VALENT VACCINE [Suspect]
     Indication: IMMUNISATION
     Dosage: 1.0 DF, QD
     Route: 030
     Dates: start: 20091026, end: 20091026
  3. PANTOPRAZOLE [Concomitant]
  4. PARACETAMOL [Concomitant]
  5. PREDNISONE [Concomitant]

REACTIONS (5)
  - Aortic valve stenosis [Recovered/Resolved]
  - Left ventricular dysfunction [Unknown]
  - Fibrin D dimer increased [Unknown]
  - PCO2 decreased [Unknown]
  - N-terminal prohormone brain natriuretic peptide increased [Unknown]
